FAERS Safety Report 4283279-9 (Version None)
Quarter: 2004Q1

REPORT INFORMATION
  Report Type: 
  Country: None (occurrence: None)
  Receive Date: 20040129
  Receipt Date: 20040119
  Transmission Date: 20041129
  Serious: Yes (Death, Hospitalization)
  Sender: FDA-Public Use
  Company Number: 2004SE00245

PATIENT
  Age: 91 Year
  Sex: Male

DRUGS (6)
  1. CASODEX [Suspect]
     Indication: PROSTATE CANCER
     Dosage: 50 MG DAILY PO
     Route: 048
     Dates: start: 20030801, end: 20031101
  2. ZOLADEX [Concomitant]
  3. DIURAL [Concomitant]
  4. PINEX [Concomitant]
  5. LEVAXIN [Concomitant]
  6. ALBYL-E [Concomitant]

REACTIONS (5)
  - CHOLESTASIS [None]
  - CHRONIC HEPATITIS [None]
  - DERMATITIS [None]
  - HEPATIC FAILURE [None]
  - HEPATIC FIBROSIS [None]
